FAERS Safety Report 4328167-4 (Version None)
Quarter: 2004Q1

REPORT INFORMATION
  Report Type: 
  Country: None (occurrence: None)
  Receive Date: 20040325
  Receipt Date: 20040310
  Transmission Date: 20041129
  Serious: Yes (Hospitalization)
  Sender: FDA-Public Use
  Company Number: 701606

PATIENT
  Age: 68 Year
  Sex: Male

DRUGS (5)
  1. AMEVIVE [Suspect]
     Indication: PSORIASIS
     Dosage: 15 MG QW IM
     Route: 030
     Dates: start: 20040109, end: 20040130
  2. AMEVIVE [Suspect]
     Indication: PSORIASIS
     Dosage: 15 MG QW IM
     Route: 030
     Dates: start: 20040213
  3. GLUCOTROL [Concomitant]
  4. GLUCOPHAGE ^UNS^ [Concomitant]
  5. LANTUS [Concomitant]

REACTIONS (5)
  - CONDITION AGGRAVATED [None]
  - FEELING ABNORMAL [None]
  - PAIN [None]
  - PSORIASIS [None]
  - PYREXIA [None]
